FAERS Safety Report 16572629 (Version 1)
Quarter: 2019Q3

REPORT INFORMATION
  Report Type: Spontaneous
  Country: US (occurrence: US)
  Receive Date: 20190531
  Receipt Date: 20190531
  Transmission Date: 20191004
  Serious: Yes (Hospitalization)
  Sender: FDA-Public Use
  Company Number: None

PATIENT
  Age: 44 Year
  Sex: Female
  Weight: 120.9 kg

DRUGS (1)
  1. ASPIRIN (27223) [Suspect]
     Active Substance: ASPIRIN
     Dates: end: 20190515

REACTIONS (5)
  - Pyrexia [None]
  - Pain [None]
  - Abdominal pain [None]
  - Breast cancer metastatic [None]
  - Portal vein thrombosis [None]

NARRATIVE: CASE EVENT DATE: 20190516
